FAERS Safety Report 23957926 (Version 1)
Quarter: 2024Q2

REPORT INFORMATION
  Report Type: Spontaneous
  Country: US (occurrence: None)
  Receive Date: 20240608
  Receipt Date: 20240608
  Transmission Date: 20240716
  Serious: Yes (unspecified)
  Sender: FDA-Public Use
  Company Number: None

PATIENT
  Age: 46 Year
  Sex: Female
  Weight: 90 kg

DRUGS (1)
  1. ZETIA [Suspect]
     Active Substance: EZETIMIBE
     Indication: Hyperlipidaemia
     Dosage: FREQUENCY : DAILY;?
     Route: 048

REACTIONS (2)
  - Hepatic enzyme increased [None]
  - Therapy cessation [None]

NARRATIVE: CASE EVENT DATE: 20240107
